FAERS Safety Report 8193603-2 (Version None)
Quarter: 2012Q1

REPORT INFORMATION
  Report Type: 
  Country: None (occurrence: None)
  Receive Date: 20120308
  Receipt Date: 20120305
  Transmission Date: 20120608
  Serious: Yes (Other)
  Sender: FDA-Public Use
  Company Number: US-PFIZER INC-2012058970

PATIENT
  Sex: Female
  Weight: 129.25 kg

DRUGS (7)
  1. OXYBUTYNIN [Concomitant]
     Dosage: 5 MG, UNK
  2. CLONAZEPAM [Concomitant]
     Dosage: UNK, AS NEEDED
  3. AMBIEN [Concomitant]
     Dosage: 10 MG, AS NEEDED
  4. RELPAX [Suspect]
     Indication: MIGRAINE
     Dosage: 40 MG, AS NEEDED
     Route: 048
     Dates: end: 20120101
  5. NORCO [Concomitant]
     Dosage: 5/325 MG, AS NEEDED
  6. AMITRIPTYLINE [Concomitant]
     Indication: MIGRAINE
     Dosage: 50 MG, 1X/DAY
  7. FLUOXETINE [Concomitant]
     Dosage: 80 MG, UNK

REACTIONS (2)
  - JOINT INJURY [None]
  - HEADACHE [None]
